FAERS Safety Report 4439493-2 (Version None)
Quarter: 2004Q3

REPORT INFORMATION
  Report Type: 
  Country: None (occurrence: None)
  Receive Date: 20040901
  Receipt Date: 20040901
  Transmission Date: 20050211
  Serious: Yes (Hospitalization)
  Sender: FDA-Public Use
  Company Number: None

PATIENT
  Sex: Female
  Weight: 60.782 kg

DRUGS (9)
  1. AUGMENTIN '125' [Suspect]
     Dosage: 875 MG PO BID [PRIOR TO ADMISSION]
     Route: 048
  2. LOVASTATIN [Concomitant]
  3. SYNTHROID [Concomitant]
  4. PROZAC [Concomitant]
  5. ACCOLATE [Concomitant]
  6. SEREVENT [Concomitant]
  7. AZMACORT [Concomitant]
  8. ALBUTEROL [Concomitant]
  9. CYCLOBENAZPRINE [Concomitant]

REACTIONS (5)
  - ERYTHEMA [None]
  - NAUSEA [None]
  - OEDEMA PERIPHERAL [None]
  - PRURITUS [None]
  - RASH PRURITIC [None]
